FAERS Safety Report 6114396-6 (Version None)
Quarter: 2009Q1

REPORT INFORMATION
  Report Type: 
  Country: None (occurrence: None)
  Receive Date: 20090313
  Receipt Date: 20090310
  Transmission Date: 20090719
  Serious: Yes (Other)
  Sender: FDA-Public Use
  Company Number: US-RANBAXY-2009US-22136

PATIENT

DRUGS (1)
  1. LISINOPRIL [Suspect]
     Indication: DRUG USE FOR UNKNOWN INDICATION
     Dosage: UNK, UNK
     Route: 048
     Dates: start: 20060101, end: 20060401

REACTIONS (4)
  - DERMATITIS [None]
  - LYMPHOEDEMA [None]
  - RASH GENERALISED [None]
  - RASH PRURITIC [None]
